FAERS Safety Report 5157313-8 (Version None)
Quarter: 2006Q4

REPORT INFORMATION
  Report Type: 
  Country: None (occurrence: None)
  Receive Date: 20061127
  Receipt Date: 20061116
  Transmission Date: 20070319
  Serious: Yes (Hospitalization)
  Sender: FDA-Public Use
  Company Number: CH-AVENTIS-200621893GDDC

PATIENT
  Sex: Male

DRUGS (8)
  1. LANTUS [Suspect]
     Route: 058
  2. AVANDAMET [Suspect]
     Route: 048
     Dates: start: 20060301
  3. HUMALOG [Suspect]
     Route: 058
  4. PLAVIX [Concomitant]
     Route: 048
  5. BELOC-ZOK [Concomitant]
     Route: 048
  6. NEXIUM [Concomitant]
     Route: 048
  7. FLUCTINE [Concomitant]
     Route: 048
  8. ALLOPURINOL [Concomitant]
     Route: 048

REACTIONS (10)
  - ANAEMIA [None]
  - BLOOD CREATINE PHOSPHOKINASE INCREASED [None]
  - DYSPNOEA [None]
  - IRON DEFICIENCY ANAEMIA [None]
  - NOCTURNAL DYSPNOEA [None]
  - OEDEMA [None]
  - PAIN IN EXTREMITY [None]
  - SYNOVIAL CYST [None]
  - WEIGHT INCREASED [None]
  - WHEEZING [None]
